FAERS Safety Report 9563388 (Version 3)
Quarter: 2013Q4

REPORT INFORMATION
  Report Type: Spontaneous
  Country: JP (occurrence: JP)
  Receive Date: 20130927
  Receipt Date: 20131025
  Transmission Date: 20140711
  Serious: Yes (Hospitalization)
  Sender: FDA-Public Use
  Company Number: JP-TAKEDA-TPA2013A07276

PATIENT
  Sex: 0

DRUGS (6)
  1. FEBURIC [Suspect]
     Indication: HYPERURICAEMIA
     Dosage: 10 MG, QD
     Route: 048
     Dates: start: 20120615, end: 20120718
  2. SERENACE [Concomitant]
     Indication: SCHIZOPHRENIA
     Dosage: 3 MG, QD
     Route: 048
  3. INVEGA [Concomitant]
     Indication: SCHIZOPHRENIA
     Dosage: 12 MG, QD
     Route: 048
  4. REFLEX                             /00684602/ [Concomitant]
     Indication: SCHIZOPHRENIA
     Dosage: 30 MG, QD
     Route: 048
  5. ROHYPNOL [Concomitant]
     Indication: SCHIZOPHRENIA
     Dosage: 2 MG, QD
     Route: 048
  6. LIMAPROST ALFADEX [Concomitant]
     Indication: BACK PAIN
     Dosage: 15 ?G, QD
     Route: 048

REACTIONS (1)
  - Polymyalgia rheumatica [Recovered/Resolved]
